FAERS Safety Report 11192533 (Version 4)
Quarter: 2015Q4

REPORT INFORMATION
  Report Type: Spontaneous
  Country: US (occurrence: US)
  Receive Date: 20150616
  Receipt Date: 20151006
  Transmission Date: 20160304
  Serious: Yes (Hospitalization)
  Sender: FDA-Public Use
  Company Number: US-PFIZER INC-2015195753

PATIENT
  Age: 59 Year
  Sex: Male
  Weight: 64 kg

DRUGS (6)
  1. TESTOSTERONE. [Concomitant]
     Active Substance: TESTOSTERONE
     Dosage: UNK
  2. METHADONE [Concomitant]
     Active Substance: METHADONE HYDROCHLORIDE
     Dosage: UNK
  3. SUTENT [Suspect]
     Active Substance: SUNITINIB MALATE
     Dosage: 12.5 MG, 1X/DAY
     Dates: start: 2015
  4. TYLENOL [Concomitant]
     Active Substance: ACETAMINOPHEN
     Dosage: UNK
  5. SUTENT [Suspect]
     Active Substance: SUNITINIB MALATE
     Indication: RENAL CANCER STAGE IV
     Dosage: 37.5 MG CYCLIC, DAILY (2WEEKS ON AND 1WEEK OFF )
     Dates: start: 20150301
  6. SUTENT [Suspect]
     Active Substance: SUNITINIB MALATE
     Dosage: 37.5 MG, DAILY
     Dates: start: 2015, end: 20150922

REACTIONS (11)
  - Ageusia [Unknown]
  - Renal cancer stage IV [Unknown]
  - Fatigue [Unknown]
  - Neuralgia [Unknown]
  - Palmar-plantar erythrodysaesthesia syndrome [Unknown]
  - Dysgeusia [Unknown]
  - Dry mouth [Unknown]
  - Disease progression [Unknown]
  - Diarrhoea [Recovered/Resolved]
  - Back pain [Recovered/Resolved]
  - Hair colour changes [Unknown]

NARRATIVE: CASE EVENT DATE: 2015
